FAERS Safety Report 9196837 (Version 4)
Quarter: 2013Q3

REPORT INFORMATION
  Report Type: Report from Study
  Country: US (occurrence: US)
  Receive Date: 20130328
  Receipt Date: 20130812
  Transmission Date: 20140515
  Serious: Yes (Death, Hospitalization, Other)
  Sender: FDA-Public Use
  Company Number: PHEH2013US006717

PATIENT
  Age: 29 Year
  Sex: Male
  Weight: 55 kg

DRUGS (21)
  1. TOBI [Suspect]
     Indication: PSEUDOMONAS INFECTION
     Dosage: 300 MG, BID
     Dates: start: 1998
  2. TOBI [Suspect]
     Dosage: 1 DF, BID (14 DAYS IN, 14 DAYS OFF CYCLING)
     Dates: start: 2003
  3. TOBI [Suspect]
     Dosage: 300 MG, BID
     Dates: start: 20130207, end: 20130405
  4. PULMOZYME [Concomitant]
     Dosage: 2.5 MG/ML, DAILY
  5. CREON [Concomitant]
     Dosage: UNK DF, 5-6 CAPSULES WITH MEALS; 2-3 CAPSULES WITH SNACKS
  6. DEFLAZACORT [Concomitant]
     Dosage: 2 DF, BEFORE MEALS
  7. ADEK [Concomitant]
     Dosage: 1 DF, BID
     Route: 048
  8. STOOL SOFTENER [Concomitant]
  9. ZITHROMAX [Concomitant]
     Dosage: 1 DF, DAILY ON MONDAYS, WEDNESDAYS AND FRIDAYS
  10. FLONASE [Concomitant]
     Dosage: 2 DF, (1-2 SPRAYS EACH NOSTRIL 1-2 TIMES DAILY)
  11. SPIRIVA [Concomitant]
     Dosage: 1 DF, QD
  12. SEREVENT [Concomitant]
     Dosage: 1 DF, BID
  13. VENTOLINE [Concomitant]
  14. MOTRIN [Concomitant]
     Indication: HEADACHE
     Dosage: 1 DF, BID
  15. OMEPRAZOLE [Concomitant]
  16. ALBUTEROL HFA [Concomitant]
     Dosage: 2 DF, (2 PUFF, 4 TIMES DAILY AS NEEDED)
  17. DRISDOL [Concomitant]
     Dosage: 1 DF, QW
  18. OMEGA 3 FISH OIL [Concomitant]
     Dosage: 1 DF, BID
  19. PROTONIX [Concomitant]
     Dosage: 40 MG, DAILY
     Route: 048
  20. SODIUM CHLORIDE [Concomitant]
     Dosage: 4 ML, BID
  21. IBUPROFEN [Concomitant]
     Dosage: UNK

REACTIONS (22)
  - Death [Fatal]
  - Pneumonia [Unknown]
  - Cystic fibrosis [Unknown]
  - Abdominal discomfort [Unknown]
  - Chest pain [Unknown]
  - Diet refusal [Unknown]
  - Heart rate increased [Unknown]
  - Oxygen saturation decreased [Not Recovered/Not Resolved]
  - Pyrexia [Not Recovered/Not Resolved]
  - Dyspnoea [Not Recovered/Not Resolved]
  - Food intolerance [Not Recovered/Not Resolved]
  - Anxiety [Not Recovered/Not Resolved]
  - Depression [Unknown]
  - Pneumonia pneumococcal [Unknown]
  - Malaise [Not Recovered/Not Resolved]
  - Cough [Not Recovered/Not Resolved]
  - Hypoacusis [Not Recovered/Not Resolved]
  - Underweight [Not Recovered/Not Resolved]
  - Abdominal pain upper [Not Recovered/Not Resolved]
  - Vomiting [Not Recovered/Not Resolved]
  - Headache [Not Recovered/Not Resolved]
  - Pulmonary function test decreased [Not Recovered/Not Resolved]
